FAERS Safety Report 18554858 (Version 2)
Quarter: 2021Q1

REPORT INFORMATION
  Report Type: Spontaneous
  Country: GB (occurrence: GB)
  Receive Date: 20201127
  Receipt Date: 20210127
  Transmission Date: 20210419
  Serious: Yes (Hospitalization)
  Sender: FDA-Public Use
  Company Number: NVSC2020GB314980

PATIENT
  Sex: Male

DRUGS (4)
  1. PREDNISOLONE. [Suspect]
     Active Substance: PREDNISOLONE
     Indication: PRODUCT USED FOR UNKNOWN INDICATION
     Dosage: 15 MG, QD
     Route: 065
  2. ADOPORT [Suspect]
     Active Substance: TACROLIMUS
     Indication: PRODUCT USED FOR UNKNOWN INDICATION
     Dosage: 1 DF, BID (STRENGTH 1 MG)
     Route: 065
  3. ADOPORT [Suspect]
     Active Substance: TACROLIMUS
     Dosage: 0.5 MG (STRENGTH 0.5MG, ON)
     Route: 065
  4. VALGANCICLOVIR. [Suspect]
     Active Substance: VALGANCICLOVIR
     Indication: PRODUCT USED FOR UNKNOWN INDICATION
     Dosage: 450 MG, TIW
     Route: 065

REACTIONS (4)
  - Heart transplant rejection [Unknown]
  - Malabsorption [Unknown]
  - Gastrointestinal disorder [Unknown]
  - Illness [Unknown]
